FAERS Safety Report 22659290 (Version 1)
Quarter: 2023Q2

REPORT INFORMATION
  Report Type: Report from Study
  Country: EG (occurrence: EG)
  Receive Date: 20230630
  Receipt Date: 20230630
  Transmission Date: 20230722
  Serious: Yes (Other)
  Sender: FDA-Public Use
  Company Number: EG-002147023-NVSC2023EG148557

PATIENT
  Age: 71 Year
  Sex: Female

DRUGS (9)
  1. COSENTYX [Suspect]
     Active Substance: SECUKINUMAB
     Indication: Rheumatic disorder
     Dosage: 1 DOSAGE FORM, QMO
     Route: 058
     Dates: end: 202303
  2. OLMESARTAN MEDOXOMIL [Suspect]
     Active Substance: OLMESARTAN MEDOXOMIL
     Indication: Hypertension
     Dosage: UNK, QD 40/10/25 (ONCE BEFORE BREAKFAST)
     Route: 065
     Dates: start: 202306
  3. CANDALKAN [Concomitant]
     Indication: Hypertension
     Dosage: 1 DOSAGE FORM, QD (32/12, DAILY IN THE MORNING)
     Route: 065
     Dates: start: 20230620
  4. DILATROL [Concomitant]
     Indication: Hypertension
     Dosage: 1 DOSAGE FORM, BID (ONE IN THE MORNING AND ONE IN THE EVENING)
     Route: 065
     Dates: start: 20230620
  5. SOLUPRED [Concomitant]
     Indication: Rheumatic disorder
     Dosage: 1.5 DOSAGE FORM, QD (STARTED BEFORE COSENTYX, 5 MG CORTISONE, 1 AND HALF TABLET PER DAY DAILY)
     Route: 065
  6. SOLUPRED [Concomitant]
     Dosage: 1 DOSAGE FORM, QD (REDUCED TO ONE TABLET PER DAY)
     Route: 065
  7. LEVOTHYROXINE [Concomitant]
     Active Substance: LEVOTHYROXINE
     Indication: Thyroidectomy
     Dosage: 200 MG
     Route: 065
  8. LEVOTHYROXINE [Concomitant]
     Active Substance: LEVOTHYROXINE
     Dosage: 150 MG
     Route: 065
  9. LEVOTHYROXINE [Concomitant]
     Active Substance: LEVOTHYROXINE
     Dosage: 175 MG (CURRENTLY, BEFORE BREAKFAST)
     Route: 065

REACTIONS (9)
  - Cellulitis [Not Recovered/Not Resolved]
  - Peripheral swelling [Not Recovered/Not Resolved]
  - Pain in extremity [Not Recovered/Not Resolved]
  - Gait disturbance [Not Recovered/Not Resolved]
  - Memory impairment [Not Recovered/Not Resolved]
  - Osteoporosis [Not Recovered/Not Resolved]
  - Bone disorder [Not Recovered/Not Resolved]
  - Product use in unapproved indication [Recovered/Resolved]
  - Drug ineffective for unapproved indication [Not Recovered/Not Resolved]

NARRATIVE: CASE EVENT DATE: 20230301
